FAERS Safety Report 4592798-7 (Version None)
Quarter: 2005Q1

REPORT INFORMATION
  Report Type: 
  Country: None (occurrence: None)
  Receive Date: 20050228
  Receipt Date: 20030220
  Transmission Date: 20050727
  Serious: Yes (Other)
  Sender: FDA-Public Use
  Company Number: PHNR2003AU00572

PATIENT
  Age: 37 Year
  Sex: Female

DRUGS (2)
  1. SOLIAN [Concomitant]
  2. CLOZARIL [Suspect]
     Dosage: 12-650MG,DAY
     Route: 048
     Dates: start: 19990702

REACTIONS (7)
  - ABDOMINAL PAIN UPPER [None]
  - ANAEMIA [None]
  - GASTROENTERITIS [None]
  - GASTROINTESTINAL HAEMORRHAGE [None]
  - MALAISE [None]
  - NAUSEA [None]
  - VOMITING [None]
